FAERS Safety Report 10247528 (Version 2)
Quarter: 2014Q3

REPORT INFORMATION
  Report Type: Report from Study
  Country: DE (occurrence: DE)
  Receive Date: 20140619
  Receipt Date: 20140703
  Transmission Date: 20150326
  Serious: Yes (Other)
  Sender: FDA-Public Use
  Company Number: DE-INCYTE CORPORATION-2014IN001633

PATIENT
  Sex: Female
  Weight: 58 kg

DRUGS (11)
  1. INCB018424 [Suspect]
     Active Substance: RUXOLITINIB
     Dosage: 5 MG, QD (1 DF PER DAY)
     Route: 048
     Dates: start: 20131121, end: 20131201
  2. INCB018424 [Suspect]
     Active Substance: RUXOLITINIB
     Indication: MYELOFIBROSIS
     Dosage: 5 MG, BID (2 DF PER DAY)
     Route: 048
     Dates: start: 20130906
  3. INCB018424 [Suspect]
     Active Substance: RUXOLITINIB
     Dosage: 25 MG, PER DAY (5MG 2 DF, 15 MG)
     Route: 048
     Dates: start: 20140402
  4. NOVAMINSULFON [Concomitant]
     Active Substance: METAMIZOLE
     Indication: BONE PAIN
     Dates: start: 20140213
  5. INCB018424 [Suspect]
     Active Substance: RUXOLITINIB
     Dosage: 5 MG, BID (2 DF PER DAY)
     Route: 048
     Dates: start: 20131202, end: 20140213
  6. LITALIR [Concomitant]
     Active Substance: HYDROXYUREA
     Dosage: UNK
     Dates: end: 20130912
  7. INCB018424 [Suspect]
     Active Substance: RUXOLITINIB
     Dosage: 5 MG, BID (2 DF PER DAY)
     Route: 048
     Dates: start: 20140219, end: 20140226
  8. TRANSFUSIONS [Concomitant]
     Active Substance: UNSPECIFIED INGREDIENT
     Dates: start: 20130927
  9. IBUPROFEN. [Concomitant]
     Active Substance: IBUPROFEN
     Dosage: UNK
     Dates: start: 20131104, end: 20131122
  10. FERRLECIT                          /00345601/ [Concomitant]
  11. INCB018424 [Suspect]
     Active Substance: RUXOLITINIB
     Dosage: 5 MG, QID (4 DF PER DAY)
     Route: 048
     Dates: start: 20140227, end: 20140401

REACTIONS (2)
  - Iron overload [Not Recovered/Not Resolved]
  - Anaemia [Not Recovered/Not Resolved]

NARRATIVE: CASE EVENT DATE: 20130926
